FAERS Safety Report 19213275 (Version 3)
Quarter: 2021Q3

REPORT INFORMATION
  Report Type: Spontaneous
  Country: JP (occurrence: JP)
  Receive Date: 20210504
  Receipt Date: 20210809
  Transmission Date: 20211014
  Serious: Yes (Hospitalization, Other)
  Sender: FDA-Public Use
  Company Number: JP-OTSUKA-2021_014749

PATIENT
  Age: 61 Year
  Sex: Male

DRUGS (8)
  1. BUSULFEX [Suspect]
     Active Substance: BUSULFAN
     Indication: AUTOLOGOUS HAEMATOPOIETIC STEM CELL TRANSPLANT
     Dosage: 180 MG, DAILY DOSE
     Route: 041
     Dates: start: 20200402, end: 20200405
  2. BUSULFEX [Suspect]
     Active Substance: BUSULFAN
     Indication: CENTRAL NERVOUS SYSTEM LYMPHOMA
  3. CYMERIN [Suspect]
     Active Substance: RANIMUSTINE
     Indication: AUTOLOGOUS HAEMATOPOIETIC STEM CELL TRANSPLANT
     Dosage: 90 MG, DAILY DOSE
     Route: 041
     Dates: start: 20200406, end: 20200407
  4. VEPESID [Concomitant]
     Active Substance: ETOPOSIDE
     Indication: CENTRAL NERVOUS SYSTEM LYMPHOMA
  5. GANCICLOVIR. [Concomitant]
     Active Substance: GANCICLOVIR
     Indication: CYTOMEGALOVIRUS TEST POSITIVE
     Dosage: UNK
     Route: 065
     Dates: start: 20200525, end: 20200530
  6. VEPESID [Concomitant]
     Active Substance: ETOPOSIDE
     Indication: AUTOLOGOUS HAEMATOPOIETIC STEM CELL TRANSPLANT
     Dosage: 600 MG, DAILY DOSE
     Route: 041
     Dates: start: 20200406, end: 20200408
  7. CYMERIN [Suspect]
     Active Substance: RANIMUSTINE
     Indication: CENTRAL NERVOUS SYSTEM LYMPHOMA
  8. GANCICLOVIR. [Concomitant]
     Active Substance: GANCICLOVIR
     Indication: ENTEROCOLITIS

REACTIONS (5)
  - Gastrointestinal haemorrhage [Recovered/Resolved]
  - Hydrocephalus [Recovered/Resolved]
  - Hypoalbuminaemia [Recovered/Resolved]
  - Cytomegalovirus infection [Recovered/Resolved]
  - Memory impairment [Not Recovered/Not Resolved]

NARRATIVE: CASE EVENT DATE: 20200520
